FAERS Safety Report 13490049 (Version 1)
Quarter: 2017Q2

REPORT INFORMATION
  Report Type: Spontaneous
  Country: US (occurrence: US)
  Receive Date: 20170427
  Receipt Date: 20170427
  Transmission Date: 20170830
  Serious: Yes (Other)
  Sender: FDA-Public Use
  Company Number: None

PATIENT
  Age: 61 Year
  Sex: Female
  Weight: 86.26 kg

DRUGS (1)
  1. AMOXICILLIN 875MG TABLETS [Suspect]
     Active Substance: AMOXICILLIN
     Indication: BACTERIAL INFECTION
     Dosage: ?          QUANTITY:TORCH/L:;?
     Route: 048
     Dates: start: 20170413, end: 20170415

REACTIONS (1)
  - Haematochezia [None]

NARRATIVE: CASE EVENT DATE: 20170416
